APPROVED DRUG PRODUCT: BREXAFEMME
Active Ingredient: IBREXAFUNGERP CITRATE
Strength: EQ 150MG BASE
Dosage Form/Route: TABLET;ORAL
Application: N214900 | Product #001
Applicant: GLAXOSMITHKLINE LLC
Approved: Jun 1, 2021 | RLD: Yes | RS: Yes | Type: RX

PATENTS:
Patent 11534433 | Expires: Jun 10, 2039
Patent 11534433 | Expires: Jun 10, 2039
Patent 8188085 | Expires: Aug 28, 2030
Patent 10370406 | Expires: Jan 19, 2035
Patent 10927142 | Expires: Jan 19, 2035
Patent 10174074 | Expires: Jan 19, 2035

EXCLUSIVITY:
Code: NCE | Date: Jun 1, 2026
Code: GAIN | Date: Jun 1, 2031